FAERS Safety Report 18635932 (Version 1)
Quarter: 2020Q4

REPORT INFORMATION
  Report Type: Report from Study
  Country: US (occurrence: US)
  Receive Date: 20201218
  Receipt Date: 20201218
  Transmission Date: 20210114
  Serious: Yes (Death, Other)
  Sender: FDA-Public Use
  Company Number: US-ASTRAZENECA-2020SF68744

PATIENT
  Age: 32759 Day
  Sex: Male

DRUGS (4)
  1. MORPHINE [Concomitant]
     Active Substance: MORPHINE
  2. TAGRISSO [Suspect]
     Active Substance: OSIMERTINIB
     Indication: LUNG CANCER METASTATIC
     Route: 048
     Dates: start: 202010, end: 202012
  3. OXYGEN. [Concomitant]
     Active Substance: OXYGEN
  4. TAGRISSO [Suspect]
     Active Substance: OSIMERTINIB
     Indication: NEOPLASM MALIGNANT
     Route: 048
     Dates: start: 202010, end: 202012

REACTIONS (15)
  - Death [Fatal]
  - Mastication disorder [Unknown]
  - Fall [Unknown]
  - Sitting disability [Unknown]
  - Diarrhoea [Unknown]
  - Respiratory rate increased [Unknown]
  - Cyanosis [Unknown]
  - Eating disorder [Unknown]
  - Sleep disorder [Unknown]
  - Dysphagia [Unknown]
  - Gait disturbance [Unknown]
  - Somnolence [Unknown]
  - Malignant neoplasm progression [Unknown]
  - Productive cough [Unknown]
  - Cardiovascular disorder [Unknown]

NARRATIVE: CASE EVENT DATE: 20201212
